FAERS Safety Report 7308146-5 (Version None)
Quarter: 2011Q1

REPORT INFORMATION
  Report Type: 
  Country: None (occurrence: None)
  Receive Date: 20110223
  Receipt Date: 20110215
  Transmission Date: 20110831
  Serious: Yes (Hospitalization)
  Sender: FDA-Public Use
  Company Number: US-ASTRAZENECA-2011SE08936

PATIENT
  Age: 63 Year
  Sex: Male

DRUGS (1)
  1. SYMBICORT [Suspect]
     Indication: DYSPNOEA
     Dosage: TOTAL DAILY DOSE 160/4.5 MCG
     Route: 055

REACTIONS (4)
  - DYSPNOEA [None]
  - PANIC ATTACK [None]
  - DRUG INEFFECTIVE [None]
  - THROMBOSIS [None]
